FAERS Safety Report 24991931 (Version 4)
Quarter: 2025Q4

REPORT INFORMATION
  Report Type: Report from Study
  Country: US (occurrence: US)
  Receive Date: 20250220
  Receipt Date: 20251224
  Transmission Date: 20260118
  Serious: Yes (Other)
  Sender: PFIZER
  Company Number: US-PFIZER INC-PV202300180028

PATIENT
  Age: 80 Year
  Sex: Male

DRUGS (6)
  1. XELJANZ XR [Suspect]
     Active Substance: TOFACITINIB CITRATE
     Dosage: 11 MG
  2. ALPHAGAN P [Concomitant]
     Active Substance: BRIMONIDINE TARTRATE
     Dosage: UNK
  3. ROCKLATAN [Concomitant]
     Active Substance: LATANOPROST\NETARSUDIL MESYLATE
     Dosage: UNK
  4. TIMOLOL [Concomitant]
     Active Substance: TIMOLOL
     Dosage: UNK
  5. LUMIGAN [Concomitant]
     Active Substance: BIMATOPROST
     Dosage: UNK
  6. DORZOLAMIDE [Concomitant]
     Active Substance: DORZOLAMIDE
     Dosage: UNK

REACTIONS (2)
  - Eye operation [Unknown]
  - Visual impairment [Unknown]
